FAERS Safety Report 7237236-0 (Version None)
Quarter: 2011Q1

REPORT INFORMATION
  Report Type: 
  Country: None (occurrence: None)
  Receive Date: 20110121
  Receipt Date: 20110112
  Transmission Date: 20110831
  Serious: Yes (Other)
  Sender: FDA-Public Use
  Company Number: JP-ASTELLAS-2011JP000262

PATIENT
  Age: 82 Year
  Sex: Female

DRUGS (4)
  1. SYMMETREL [Concomitant]
     Route: 065
  2. ROCEPHIN [Concomitant]
     Route: 065
  3. GASTER [Suspect]
     Dosage: 20 MG, UNKNOWN/D
     Route: 065
     Dates: start: 20101130
  4. VESICARE [Suspect]
     Dosage: 5 MG, UNKNOWN/D
     Route: 048

REACTIONS (1)
  - THROMBOCYTOPENIA [None]
